FAERS Safety Report 18489561 (Version 2)
Quarter: 2020Q4

REPORT INFORMATION
  Report Type: Spontaneous
  Country: US (occurrence: US)
  Receive Date: 20201111
  Receipt Date: 20201216
  Transmission Date: 20210114
  Serious: Yes (Hospitalization, Other)
  Sender: FDA-Public Use
  Company Number: US-ROCHE-2707632

PATIENT
  Age: 45 Year
  Sex: Female

DRUGS (2)
  1. AMITIZA [Concomitant]
     Active Substance: LUBIPROSTONE
     Indication: CONSTIPATION
     Route: 048
     Dates: start: 202011
  2. EVRYSDI [Suspect]
     Active Substance: RISDIPLAM
     Indication: SPINAL MUSCULAR ATROPHY
     Dosage: ONGOING YES (TAKES EVRYSDI EVERY DAY AT NOON, AFTER EATING A MEAL)
     Route: 048
     Dates: start: 20201029

REACTIONS (5)
  - Nausea [Not Recovered/Not Resolved]
  - Chest pain [Recovered/Resolved]
  - COVID-19 [Unknown]
  - Palpitations [Recovering/Resolving]
  - Pyrexia [Recovered/Resolved]

NARRATIVE: CASE EVENT DATE: 20201029
